FAERS Safety Report 10798247 (Version 3)
Quarter: 2015Q2

REPORT INFORMATION
  Report Type: Spontaneous
  Country: US (occurrence: US)
  Receive Date: 20150216
  Receipt Date: 20150521
  Transmission Date: 20150821
  Serious: No
  Sender: FDA-Public Use
  Company Number: US-PFIZER INC-2015056786

PATIENT
  Age: 77 Year
  Sex: Male
  Weight: 82 kg

DRUGS (14)
  1. CELEBREX [Suspect]
     Active Substance: CELECOXIB
     Indication: PAIN IN EXTREMITY
     Dosage: 200 MG, 1X/DAY
     Route: 048
     Dates: start: 20140312, end: 201412
  2. MAGNESIUM [Concomitant]
     Active Substance: MAGNESIUM
     Dosage: TAKE 1 CAPSULE BY ORAL ROUTE DAILY
     Route: 048
  3. MULTIVITAMIN [Concomitant]
     Active Substance: VITAMINS
     Dosage: TAKE 1 TABLET BY ORAL ROUTE DAILY
     Route: 048
  4. OMEPRAZOLE. [Concomitant]
     Active Substance: OMEPRAZOLE
     Dosage: TAKE 1 CAPSULE BY ORAL ROUTE 2 TIMES A DAY
     Route: 048
  5. CELEBREX [Suspect]
     Active Substance: CELECOXIB
     Indication: ARTHRITIS
     Dosage: 200 MG, DAILY
     Route: 048
     Dates: start: 20140312, end: 20150106
  6. LANTUS [Concomitant]
     Active Substance: INSULIN GLARGINE
     Dosage: 64 UNITS 1X/DAY
     Route: 058
  7. LIPITOR [Concomitant]
     Active Substance: ATORVASTATIN CALCIUM
     Dosage: TAKE ITA BLET (40 MG) BY ORAL ROUTE ONCE DAILY
     Route: 048
  8. NYSTATIN. [Concomitant]
     Active Substance: NYSTATIN
     Dosage: APPLY TO THE AFFECTED AREA(S) BY TOPICAL ROUTE 2 TIMES PER DAY FOR 14 DAYS
     Route: 061
     Dates: start: 20141111
  9. TERAZOSIN [Concomitant]
     Active Substance: TERAZOSIN\TERAZOSIN HYDROCHLORIDE
     Dosage: TAKE I CAPSULE (5 MG) BY ORAL ROUTE ONCE DAILY AT BEDTIME
     Route: 048
  10. CELEBREX [Suspect]
     Active Substance: CELECOXIB
     Indication: OSTEOARTHRITIS
  11. LEVOTHYROXINE [Concomitant]
     Active Substance: LEVOTHYROXINE
     Dosage: TAKE ITA BLET (25 MCG) BY ORAL ROUTE ONCE DAILY
     Route: 048
  12. LOSARTAN [Concomitant]
     Active Substance: LOSARTAN
     Dosage: TAKE 2 TABLETS BY ORAL ROUTE DAILY
     Route: 048
     Dates: start: 20140419
  13. ZITHROMAX [Concomitant]
     Active Substance: AZITHROMYCIN DIHYDRATE
     Dosage: TAKE 2 TABLETS (500 MG) BY ORAL ROUTE ONCE DAILY TABLET (250 MG) BY ORAL ROUTE ONCE DAILY FOR 4 DAYS
     Route: 048
     Dates: start: 20150217
  14. NOVOLOG [Concomitant]
     Active Substance: INSULIN ASPART
     Dosage: INJECT BY SUBCUTANEOUS ROUTE 10 UNITS AM, 14 UNITS LUNCH, AND 17 UNITS PM
     Route: 058

REACTIONS (2)
  - Rash [Recovered/Resolved]
  - Rash generalised [Recovered/Resolved]

NARRATIVE: CASE EVENT DATE: 20140701
